FAERS Safety Report 4886327-8 (Version None)
Quarter: 2006Q1

REPORT INFORMATION
  Report Type: 
  Country: None (occurrence: None)
  Receive Date: 20060120
  Receipt Date: 20041105
  Transmission Date: 20060701
  Serious: Yes (Hospitalization, Disabling)
  Sender: FDA-Public Use
  Company Number: US-MERCK-0411USA01384

PATIENT
  Age: 43 Year
  Sex: Female
  Weight: 100 kg

DRUGS (4)
  1. VIOXX [Suspect]
     Indication: SHOULDER PAIN
     Route: 048
     Dates: start: 20030301, end: 20040401
  2. VIOXX [Suspect]
     Route: 048
     Dates: start: 20030301, end: 20040401
  3. ASPIRIN [Concomitant]
     Route: 065
  4. ACCUPRIL [Concomitant]
     Route: 065

REACTIONS (4)
  - CARDIAC DISORDER [None]
  - DEPRESSION [None]
  - MYOCARDIAL INFARCTION [None]
  - SELF ESTEEM DECREASED [None]
